FAERS Safety Report 15126025 (Version 1)
Quarter: 2018Q3

REPORT INFORMATION
  Report Type: Spontaneous
  Country: AU (occurrence: AU)
  Receive Date: 20180710
  Receipt Date: 20180710
  Transmission Date: 20181010
  Serious: Yes (Other)
  Sender: FDA-Public Use
  Company Number: AU-SA-2018SA179224

PATIENT
  Age: 26 Year
  Sex: Female

DRUGS (1)
  1. ALEMTUZUMAB [Suspect]
     Active Substance: ALEMTUZUMAB
     Indication: RELAPSING-REMITTING MULTIPLE SCLEROSIS
     Dosage: UNK UNK, UNK
     Route: 041

REACTIONS (9)
  - Ultrasound scan abnormal [Unknown]
  - Lymphopenia [Unknown]
  - Bronchospasm [Unknown]
  - Eosinophilia [Unknown]
  - Abdominal pain upper [Unknown]
  - Interstitial lung disease [Unknown]
  - Cholecystitis acute [Unknown]
  - Chest pain [Unknown]
  - Murphy^s sign positive [Unknown]
